FAERS Safety Report 7964874-X (Version None)
Quarter: 2011Q4

REPORT INFORMATION
  Report Type: 
  Country: None (occurrence: None)
  Receive Date: 20111208
  Receipt Date: 20111208
  Transmission Date: 20120403
  Serious: No
  Sender: FDA-Public Use
  Company Number: None

PATIENT
  Age: 72 Year
  Sex: Male
  Weight: 100.24 kg

DRUGS (1)
  1. NIACIN [Suspect]
     Indication: LIPIDS ABNORMAL
     Dosage: 2 TABLETS
     Route: 048
     Dates: start: 20100829, end: 20110907

REACTIONS (2)
  - MEDICATION RESIDUE [None]
  - PRODUCT SOLUBILITY ABNORMAL [None]
